FAERS Safety Report 21883373 (Version 1)
Quarter: 2023Q1

REPORT INFORMATION
  Report Type: Report from Study
  Country: US (occurrence: US)
  Receive Date: 20230119
  Receipt Date: 20230119
  Transmission Date: 20230417
  Serious: Yes (Hospitalization)
  Sender: FDA-Public Use
  Company Number: US-Accord-270918

PATIENT
  Sex: Female
  Weight: 108.41 kg

DRUGS (3)
  1. CLOZAPINE [Suspect]
     Active Substance: CLOZAPINE
     Indication: Schizoaffective disorder
     Route: 048
  2. HYDROXYZINE [Concomitant]
     Active Substance: HYDROXYZINE HYDROCHLORIDE
     Dosage: 25 MG AS NEEDED; 50 MG AT BEDTIME
  3. PRAZOSIN [Concomitant]
     Active Substance: PRAZOSIN
     Dosage: STRENGTH: 1 MG

REACTIONS (2)
  - Fall [Unknown]
  - Lower limb fracture [Unknown]
